FAERS Safety Report 7707606-2 (Version None)
Quarter: 2011Q3

REPORT INFORMATION
  Report Type: 
  Country: None (occurrence: None)
  Receive Date: 20110824
  Receipt Date: 20110812
  Transmission Date: 20111222
  Serious: Yes (Hospitalization)
  Sender: FDA-Public Use
  Company Number: ES-JNJFOC-20110806362

PATIENT
  Age: 82 Year
  Sex: Female

DRUGS (8)
  1. TOCOPHEROL CONCENTRATE CAP [Concomitant]
  2. INDAPAMIDE [Concomitant]
  3. CHLORPHENIRAMINE MALEATE [Concomitant]
  4. ACETAMINOPHEN [Suspect]
     Indication: NASOPHARYNGITIS
     Dosage: DAILY FOR 10 DAYS
  5. ACETAMINOPHEN [Suspect]
  6. DEXTROMETHORPHAN HYDROBROMIDE [Concomitant]
  7. METAMIZOL [Concomitant]
  8. INDOMETHACIN [Concomitant]

REACTIONS (2)
  - THROMBOCYTOPENIA [None]
  - LIVER INJURY [None]
